FAERS Safety Report 9164593 (Version 2)
Quarter: 2013Q2

REPORT INFORMATION
  Report Type: Report from Study
  Country: AU (occurrence: AU)
  Receive Date: 20130315
  Receipt Date: 20130430
  Transmission Date: 20140414
  Serious: Yes (Death)
  Sender: FDA-Public Use
  Company Number: PHHY2013AU025314

PATIENT
  Sex: Male
  Weight: 70 kg

DRUGS (4)
  1. ACLASTA [Suspect]
     Indication: OSTEOPOROSIS
     Dosage: 5 MG, UNK
     Route: 042
     Dates: start: 20120131
  2. ZYLORIC [Concomitant]
     Indication: GOUT
     Dosage: UNK
     Route: 048
  3. FLOMAXTRA [Concomitant]
     Indication: BENIGN PROSTATIC HYPERPLASIA
     Dosage: UNK
     Route: 048
  4. SINEMET [Concomitant]
     Indication: PARKINSON^S DISEASE
     Dosage: UNK
     Route: 048

REACTIONS (2)
  - Parkinson^s disease [Fatal]
  - Pneumonia aspiration [Fatal]
